FAERS Safety Report 4355758-7 (Version None)
Quarter: 2004Q2

REPORT INFORMATION
  Report Type: 
  Country: None (occurrence: None)
  Receive Date: 20040510
  Receipt Date: 20040510
  Transmission Date: 20050107
  Serious: Yes (Hospitalization)
  Sender: FDA-Public Use
  Company Number: None

PATIENT
  Age: 32 Year
  Sex: Female
  Weight: 78 kg

DRUGS (2)
  1. OXACILLIN [Suspect]
     Indication: INFECTION
     Dosage: 2GM IV Q4 HR
     Route: 042
  2. OXACILLIN [Suspect]
     Indication: OSTEOTOMY
     Dosage: 2GM IV Q4 HR
     Route: 042

REACTIONS (1)
  - NEUTROPENIA [None]
